FAERS Safety Report 6130650-6 (Version None)
Quarter: 2009Q1

REPORT INFORMATION
  Report Type: 
  Country: None (occurrence: None)
  Receive Date: 20090323
  Receipt Date: 20090308
  Transmission Date: 20090719
  Serious: Yes (Other)
  Sender: FDA-Public Use
  Company Number: 2007S1005443

PATIENT
  Age: 68 Year
  Sex: Female
  Weight: 79.3795 kg

DRUGS (12)
  1. PHOSPHOSODA FLAVOR NOT SPECIFIED [Suspect]
     Indication: COLONOSCOPY
     Dosage: 90 ML;TOTAL;PO
     Route: 048
     Dates: start: 20040426, end: 20040427
  2. INSULIN [Concomitant]
  3. HUMULIN /00646001/ [Concomitant]
  4. GLUCOPHAGE [Concomitant]
  5. LISINOPRIL [Concomitant]
  6. NORVASC [Concomitant]
  7. PRAVACHOL [Concomitant]
  8. ZETIA [Concomitant]
  9. TIMOLOL MALEATE [Concomitant]
  10. XALATAN [Concomitant]
  11. CALCIUM [Concomitant]
  12. VITAMIN A [Concomitant]

REACTIONS (3)
  - DRUG TOXICITY [None]
  - HYPERPHOSPHATAEMIA [None]
  - RENAL FAILURE CHRONIC [None]
